FAERS Safety Report 9422446 (Version 1)
Quarter: 2013Q3

REPORT INFORMATION
  Report Type: Spontaneous
  Country: DE (occurrence: DE)
  Receive Date: 20130726
  Receipt Date: 20130726
  Transmission Date: 20140515
  Serious: Yes (Other)
  Sender: FDA-Public Use
  Company Number: DE-MERCK-1307DEU013239

PATIENT
  Age: 63 Year
  Sex: Female

DRUGS (6)
  1. XELEVIA [Suspect]
     Indication: DIABETES MELLITUS
     Dosage: UNK
     Route: 048
     Dates: start: 201102
  2. METFORMIN [Concomitant]
     Indication: DIABETES MELLITUS
     Dosage: UNK
     Dates: start: 201102
  3. SIOFOR [Concomitant]
  4. OLMETEC [Concomitant]
  5. FENTANYL [Concomitant]
  6. L-THYROXIN [Concomitant]

REACTIONS (1)
  - Bladder cancer [Unknown]
